FAERS Safety Report 13990444 (Version 1)
Quarter: 2017Q3

REPORT INFORMATION
  Report Type: Spontaneous
  Country: US (occurrence: US)
  Receive Date: 20170920
  Receipt Date: 20170920
  Transmission Date: 20171128
  Serious: Yes (Other)
  Sender: FDA-Public Use
  Company Number: US-ROCHE-1991568

PATIENT
  Sex: Male
  Weight: 85.81 kg

DRUGS (1)
  1. XOLAIR [Suspect]
     Active Substance: OMALIZUMAB
     Indication: URTICARIA AQUAGENIC
     Route: 058
     Dates: start: 201108

REACTIONS (2)
  - Peripheral swelling [Not Recovered/Not Resolved]
  - Dizziness [Unknown]
